FAERS Safety Report 8834653 (Version 2)
Quarter: 2013Q2

REPORT INFORMATION
  Report Type: Spontaneous
  Country: AT (occurrence: AT)
  Receive Date: 20121010
  Receipt Date: 20130523
  Transmission Date: 20140414
  Serious: Yes (Hospitalization)
  Sender: FDA-Public Use
  Company Number: PHHY2012AT087425

PATIENT
  Sex: Female

DRUGS (5)
  1. GILENYA [Suspect]
     Indication: MULTIPLE SCLEROSIS
     Dosage: 0.5 MG, UNK
     Dates: start: 20120829
  2. GILENYA [Suspect]
     Dosage: 0.5 MG, UNK
     Dates: start: 20121004
  3. ANTIDEPRESSANTS [Concomitant]
  4. XANOR [Concomitant]
  5. PANTOLOC [Concomitant]

REACTIONS (7)
  - Multiple sclerosis relapse [Not Recovered/Not Resolved]
  - JC virus test positive [Unknown]
  - Feeling abnormal [Unknown]
  - Gastrointestinal disorder [Not Recovered/Not Resolved]
  - Diarrhoea [Unknown]
  - Headache [Unknown]
  - Back pain [Unknown]
